FAERS Safety Report 8570614-6 (Version None)
Quarter: 2012Q3

REPORT INFORMATION
  Report Type: 
  Country: None (occurrence: None)
  Receive Date: 20120804
  Receipt Date: 20120724
  Transmission Date: 20120928
  Serious: No
  Sender: FDA-Public Use
  Company Number: US-ASTRAZENECA-2012SE52375

PATIENT
  Age: 35 Year
  Sex: Female

DRUGS (3)
  1. BUDESONIDE [Suspect]
     Route: 048
  2. BUDESONIDE [Suspect]
     Route: 048
  3. BUDESONIDE [Suspect]
     Dosage: GENERIC
     Route: 048

REACTIONS (5)
  - COELIAC DISEASE [None]
  - MENORRHAGIA [None]
  - ABDOMINAL PAIN [None]
  - APHAGIA [None]
  - DIARRHOEA [None]
